FAERS Safety Report 14831728 (Version 3)
Quarter: 2018Q3

REPORT INFORMATION
  Report Type: Spontaneous
  Country: GR (occurrence: GR)
  Receive Date: 20180501
  Receipt Date: 20180721
  Transmission Date: 20181010
  Serious: Yes (Death, Life-Threatening, Other)
  Sender: FDA-Public Use
  Company Number: GR-ACCORD-065381

PATIENT
  Age: 16 Year
  Sex: Female

DRUGS (3)
  1. CISPLATIN. [Suspect]
     Active Substance: CISPLATIN
     Indication: OVARIAN CANCER STAGE III
     Dosage: TWO CYCLES; FOLLOWED BY THREE CYCLES AFTER DECREASE IN CA125
     Route: 065
  2. ETOPOSIDE. [Suspect]
     Active Substance: ETOPOSIDE
     Indication: OVARIAN CANCER STAGE III
     Dosage: THREE CYCLES;TWO CYCLES
     Route: 065
  3. BLEOMYCIN [Suspect]
     Active Substance: BLEOMYCIN SULFATE
     Indication: OVARIAN CANCER STAGE III
     Dosage: TWO CYCLES
     Route: 065

REACTIONS (4)
  - Anaemia [Recovering/Resolving]
  - Disease progression [Fatal]
  - Thrombocytopenia [Unknown]
  - Neutropenia [Unknown]
